FAERS Safety Report 13472256 (Version 1)
Quarter: 2017Q2

REPORT INFORMATION
  Report Type: Spontaneous
  Country: US (occurrence: US)
  Receive Date: 20170424
  Receipt Date: 20170424
  Transmission Date: 20170830
  Serious: No
  Sender: FDA-Public Use
  Company Number: US-GLAXOSMITHKLINE-US2017053378

PATIENT
  Sex: Female

DRUGS (3)
  1. NICODERM CQ [Suspect]
     Active Substance: NICOTINE
     Indication: TOBACCO USER
     Dosage: 21 MG, UNK
     Dates: start: 20170404
  2. NICODERM CQ [Suspect]
     Active Substance: NICOTINE
     Indication: TOBACCO USER
     Dosage: UNK
  3. NICODERM CQ [Suspect]
     Active Substance: NICOTINE
     Indication: TOBACCO USER
     Dosage: 21 MG, UNK

REACTIONS (8)
  - Nightmare [Unknown]
  - Lethargy [Unknown]
  - Product use in unapproved indication [Unknown]
  - Abnormal dreams [Recovered/Resolved]
  - Application site pruritus [Not Recovered/Not Resolved]
  - Application site reaction [Unknown]
  - Circumstance or information capable of leading to medication error [Unknown]
  - Application site erythema [Not Recovered/Not Resolved]
